FAERS Safety Report 16462614 (Version 1)
Quarter: 2019Q2

REPORT INFORMATION
  Report Type: Spontaneous
  Country: US (occurrence: US)
  Receive Date: 20190621
  Receipt Date: 20190621
  Transmission Date: 20190711
  Serious: Yes (Other)
  Sender: FDA-Public Use
  Company Number: US-BIO PRODUCTS LABORATORY LTD-2069448

PATIENT
  Age: 50 Year
  Sex: Female

DRUGS (1)
  1. GENERIC IVIG [Suspect]
     Active Substance: HUMAN IMMUNOGLOBULIN G
     Indication: TRANSPLANT REJECTION
     Route: 042

REACTIONS (6)
  - Hepatitis [Recovered/Resolved]
  - Hepatic enzyme increased [Recovered/Resolved]
  - Idiosyncratic drug reaction [Recovered/Resolved]
  - Product use in unapproved indication [Recovered/Resolved]
  - Abdominal pain upper [Recovered/Resolved]
  - Drug-induced liver injury [Recovered/Resolved]
